FAERS Safety Report 13046248 (Version 1)
Quarter: 2016Q4

REPORT INFORMATION
  Report Type: Spontaneous
  Country: US (occurrence: US)
  Receive Date: 20161220
  Receipt Date: 20161220
  Transmission Date: 20170207
  Serious: No
  Sender: FDA-Public Use
  Company Number: US-GLAXOSMITHKLINE-US2016GSK187866

PATIENT
  Age: 32 Year
  Sex: Female

DRUGS (1)
  1. CAMBIA [Suspect]
     Active Substance: DICLOFENAC POTASSIUM
     Indication: MIGRAINE
     Dosage: 50 MG, SINGLE, 1 PACKET WITH 1-2 OUNCES OF WATER
     Route: 048
     Dates: start: 20161115

REACTIONS (1)
  - Nausea [Unknown]
